FAERS Safety Report 10945499 (Version 1)
Quarter: 2015Q1

REPORT INFORMATION
  Report Type: Spontaneous
  Country: FR (occurrence: None)
  Receive Date: 20150319
  Receipt Date: 20150319
  Transmission Date: 20150721
  Serious: Yes (Other)
  Sender: FDA-Public Use
  Company Number: FR2015GSK032982

PATIENT
  Age: 57 Year
  Sex: Male

DRUGS (3)
  1. KIVEXA [Suspect]
     Active Substance: ABACAVIR SULFATE\LAMIVUDINE
     Indication: HIV INFECTION
     Dosage: 1 UNK QD, ORAL
     Route: 048
     Dates: start: 20131209
  2. DIMETHYL SULFOXIDE [Suspect]
     Active Substance: DIMETHYL SULFOXIDE
     Indication: PRODUCT USED FOR UNKNOWN INDICATION
     Dosage: 3 UNK, QD, ORAL
     Route: 048
     Dates: start: 201406
  3. REYATAZ [Suspect]
     Active Substance: ATAZANAVIR SULFATE
     Indication: HIV INFECTION
     Dosage: 2 UNK, QD, ORAL
     Route: 048
     Dates: start: 20130809

REACTIONS (3)
  - Neutropenia [None]
  - Leukopenia [None]
  - Lymphopenia [None]

NARRATIVE: CASE EVENT DATE: 20141006
